FAERS Safety Report 17769148 (Version 1)
Quarter: 2020Q2

REPORT INFORMATION
  Report Type: Spontaneous
  Country: US (occurrence: US)
  Receive Date: 20200512
  Receipt Date: 20200512
  Transmission Date: 20200714
  Serious: No
  Sender: FDA-Public Use
  Company Number: US-GLAXOSMITHKLINE-US2020AMR079456

PATIENT
  Sex: Female

DRUGS (2)
  1. NUCALA [Suspect]
     Active Substance: MEPOLIZUMAB
     Indication: ASTHMA
     Dosage: UNK
     Route: 065
     Dates: start: 20200426
  2. NUCALA [Suspect]
     Active Substance: MEPOLIZUMAB
     Indication: EOSINOPHILIC GRANULOMATOSIS WITH POLYANGIITIS

REACTIONS (8)
  - Overweight [Unknown]
  - Skin disorder [Unknown]
  - Arthritis [Unknown]
  - Nervousness [Unknown]
  - Multiple allergies [Unknown]
  - Rash [Unknown]
  - Back pain [Unknown]
  - Intentional product misuse [Unknown]
